FAERS Safety Report 23523492 (Version 1)
Quarter: 2024Q1

REPORT INFORMATION
  Report Type: Spontaneous
  Country: US (occurrence: None)
  Receive Date: 20240214
  Receipt Date: 20240214
  Transmission Date: 20240410
  Serious: No
  Sender: FDA-Public Use
  Company Number: None

PATIENT
  Age: 70 Year
  Sex: Female
  Weight: 59.4 kg

DRUGS (19)
  1. PERTUZUMAB [Suspect]
     Active Substance: PERTUZUMAB
     Indication: Breast cancer metastatic
  2. SYNTHROID [Concomitant]
     Active Substance: LEVOTHYROXINE SODIUM
  3. VENLAFAXINE [Concomitant]
     Active Substance: VENLAFAXINE HYDROCHLORIDE
  4. UNDECYN [Concomitant]
  5. MYCO [Concomitant]
  6. Banderol [Concomitant]
  7. knotweek [Concomitant]
  8. VITAMINS NOS [Concomitant]
     Active Substance: VITAMINS
  9. Spore [Concomitant]
  10. AMOXICILLIN\CLAVULANIC ACID [Concomitant]
     Active Substance: AMOXICILLIN\CLAVULANIC ACID
  11. DIETARY SUPPLEMENT [Concomitant]
     Active Substance: DIETARY SUPPLEMENT
  12. HAWTHORNE [Concomitant]
  13. DIETARY SUPPLEMENT [Concomitant]
     Active Substance: DIETARY SUPPLEMENT
  14. HERBALS\SPIRULINA [Concomitant]
     Active Substance: HERBALS\SPIRULINA
  15. Noni [Concomitant]
  16. CALCIUM [Concomitant]
     Active Substance: CALCIUM
  17. VITAMIN D3 [Concomitant]
     Active Substance: CHOLECALCIFEROL
  18. VITAMIN B12 [Concomitant]
     Active Substance: CYANOCOBALAMIN
  19. CINNAMON [Concomitant]
     Active Substance: CINNAMON

REACTIONS (1)
  - Pruritus [None]

NARRATIVE: CASE EVENT DATE: 20240214
